FAERS Safety Report 8548419-1 (Version None)
Quarter: 2012Q3

REPORT INFORMATION
  Report Type: 
  Country: None (occurrence: None)
  Receive Date: 20120719
  Receipt Date: 20120719
  Transmission Date: 20120928
  Serious: Yes (Disabling)
  Sender: FDA-Public Use
  Company Number: None

PATIENT
  Sex: Male
  Weight: 93.2 kg

DRUGS (2)
  1. PROPECIA [Suspect]
     Indication: ALOPECIA
     Dosage: .5 MG ED ORAL
     Route: 048
     Dates: start: 20111007, end: 20111028
  2. PROPECIA [Suspect]
     Indication: PROPHYLAXIS
     Dosage: .5 MG ED ORAL
     Route: 048
     Dates: start: 20111007, end: 20111028

REACTIONS (25)
  - EAR DISCOMFORT [None]
  - SCROTAL DISORDER [None]
  - MIGRAINE WITH AURA [None]
  - FATIGUE [None]
  - WEIGHT DECREASED [None]
  - HYPERHIDROSIS [None]
  - BLOOD CORTISOL ABNORMAL [None]
  - TRI-IODOTHYRONINE ABNORMAL [None]
  - LOSS OF LIBIDO [None]
  - FEELING ABNORMAL [None]
  - DISTURBANCE IN ATTENTION [None]
  - INSOMNIA [None]
  - ERYTHEMA [None]
  - ERECTILE DYSFUNCTION [None]
  - MUSCULAR WEAKNESS [None]
  - HORMONE LEVEL ABNORMAL [None]
  - HAIR COLOUR CHANGES [None]
  - MOOD ALTERED [None]
  - BLOOD TESTOSTERONE FREE ABNORMAL [None]
  - PHOTOPHOBIA [None]
  - SEMEN VOLUME DECREASED [None]
  - COGNITIVE DISORDER [None]
  - BLOOD TESTOSTERONE DECREASED [None]
  - MEMORY IMPAIRMENT [None]
  - VITREOUS FLOATERS [None]
